FAERS Safety Report 20623869 (Version 1)
Quarter: 2022Q1

REPORT INFORMATION
  Report Type: Spontaneous
  Country: CN (occurrence: CN)
  Receive Date: 20220322
  Receipt Date: 20220322
  Transmission Date: 20220423
  Serious: Yes (Hospitalization)
  Sender: FDA-Public Use
  Company Number: CN-009507513-2203CHN006169

PATIENT
  Age: 80 Year
  Sex: Female
  Weight: 64 kg

DRUGS (1)
  1. KEYTRUDA [Suspect]
     Active Substance: PEMBROLIZUMAB
     Indication: Immunochemotherapy
     Dosage: 200 MG, ONCE
     Route: 042
     Dates: start: 20220302, end: 20220302

REACTIONS (6)
  - Rash pruritic [Recovering/Resolving]
  - Rash papular [Recovering/Resolving]
  - Rash [Recovering/Resolving]
  - Swelling [Recovering/Resolving]
  - Pain [Unknown]
  - Dry skin [Unknown]

NARRATIVE: CASE EVENT DATE: 20220301
